FAERS Safety Report 6902964-0 (Version None)
Quarter: 2010Q3

REPORT INFORMATION
  Report Type: 
  Country: None (occurrence: None)
  Receive Date: 20100803
  Receipt Date: 20080820
  Transmission Date: 20110219
  Serious: No
  Sender: FDA-Public Use
  Company Number: US-PFIZER INC-2008068929

PATIENT
  Sex: Male
  Weight: 65.9 kg

DRUGS (4)
  1. LYRICA [Suspect]
     Indication: HYPERSENSITIVITY
     Dates: start: 20080101
  2. DRUG, UNSPECIFIED [Concomitant]
  3. DILTIAZEM [Concomitant]
  4. LISINOPRIL [Concomitant]

REACTIONS (2)
  - DRUG INEFFECTIVE [None]
  - OEDEMA PERIPHERAL [None]
